FAERS Safety Report 16973008 (Version 2)
Quarter: 2019Q4

REPORT INFORMATION
  Report Type: Spontaneous
  Country: MX (occurrence: MX)
  Receive Date: 20191030
  Receipt Date: 20191107
  Transmission Date: 20200122
  Serious: Yes (Hospitalization, Congenital Anomaly, Other)
  Sender: FDA-Public Use
  Company Number: MX-SA-2019SA296380

PATIENT
  Sex: Female
  Weight: 2.94 kg

DRUGS (3)
  1. FOLIC ACID. [Concomitant]
     Active Substance: FOLIC ACID
     Dosage: UNK
     Route: 064
  2. PARACETAMOL [Concomitant]
     Active Substance: ACETAMINOPHEN
     Dosage: UNK
     Route: 064
  3. CLEXANE [Suspect]
     Active Substance: ENOXAPARIN SODIUM
     Indication: HYPERCOAGULATION
     Dosage: 80 MG, QD
     Route: 064
     Dates: start: 201811, end: 20190715

REACTIONS (2)
  - Craniosynostosis [Recovering/Resolving]
  - Foetal exposure during pregnancy [Recovering/Resolving]

NARRATIVE: CASE EVENT DATE: 20190716
